FAERS Safety Report 13050978 (Version 1)
Quarter: 2016Q4

REPORT INFORMATION
  Report Type: Spontaneous
  Country: US (occurrence: US)
  Receive Date: 20161221
  Receipt Date: 20161221
  Transmission Date: 20170207
  Serious: No
  Sender: FDA-Public Use
  Company Number: US-PFIZER INC-2016580660

PATIENT
  Age: 69 Year
  Sex: Female

DRUGS (7)
  1. ARTHROTEC [Suspect]
     Active Substance: DICLOFENAC SODIUM\MISOPROSTOL
     Dosage: UNK
  2. VIOXX [Suspect]
     Active Substance: ROFECOXIB
  3. BEXTRA [Suspect]
     Active Substance: VALDECOXIB
  4. MOBIC [Suspect]
     Active Substance: MELOXICAM
     Dosage: UNK
  5. NAPROSYN [Suspect]
     Active Substance: NAPROXEN
     Dosage: UNK
  6. ASPIRIN. [Suspect]
     Active Substance: ASPIRIN
  7. MOTRIN [Suspect]
     Active Substance: IBUPROFEN

REACTIONS (4)
  - Gastrooesophageal reflux disease [Unknown]
  - Mouth ulceration [Unknown]
  - Drug hypersensitivity [Unknown]
  - Abdominal discomfort [Unknown]
